FAERS Safety Report 21010457 (Version 6)
Quarter: 2022Q3

REPORT INFORMATION
  Report Type: Spontaneous
  Country: US (occurrence: US)
  Receive Date: 20220627
  Receipt Date: 20220825
  Transmission Date: 20221027
  Serious: Yes (Hospitalization, Other)
  Sender: FDA-Public Use
  Company Number: US-PFIZER INC-202200888632

PATIENT
  Age: 74 Year
  Sex: Female
  Weight: 55.34 kg

DRUGS (1)
  1. PAXLOVID [Suspect]
     Active Substance: NIRMATRELVIR\RITONAVIR
     Indication: COVID-19 treatment
     Dosage: UNK
     Dates: start: 202206, end: 202206

REACTIONS (7)
  - Dysgeusia [Unknown]
  - Cough [Recovered/Resolved]
  - Oesophageal pain [Not Recovered/Not Resolved]
  - Sepsis [Recovered/Resolved]
  - Pain in extremity [Recovered/Resolved]
  - Dysphagia [Recovered/Resolved]
  - Intentional product misuse [Unknown]

NARRATIVE: CASE EVENT DATE: 20220601
